FAERS Safety Report 5272771-6 (Version None)
Quarter: 2007Q1

REPORT INFORMATION
  Report Type: 
  Country: None (occurrence: None)
  Receive Date: 20070322
  Receipt Date: 20070313
  Transmission Date: 20070707
  Serious: Yes (Death, Hospitalization)
  Sender: FDA-Public Use
  Company Number: FR-GLAXOSMITHKLINE-B0461737A

PATIENT
  Age: 90 Year
  Sex: Female
  Weight: 40 kg

DRUGS (6)
  1. ARIXTRA [Suspect]
     Indication: ATRIAL FIBRILLATION
     Route: 058
     Dates: start: 20070223, end: 20070226
  2. CORDARONE [Concomitant]
     Indication: ATRIAL FIBRILLATION
     Dates: start: 20070223, end: 20070226
  3. TRIATEC [Concomitant]
  4. LASIX [Concomitant]
  5. VADILEX [Concomitant]
  6. KARDEGIC [Concomitant]

REACTIONS (4)
  - COMA [None]
  - MALAISE [None]
  - OFF LABEL USE [None]
  - SUBDURAL HAEMATOMA [None]
